FAERS Safety Report 5371820-4 (Version None)
Quarter: 2007Q2

REPORT INFORMATION
  Report Type: 
  Country: None (occurrence: None)
  Receive Date: 20070627
  Receipt Date: 20070622
  Transmission Date: 20071010
  Serious: Yes (Other)
  Sender: FDA-Public Use
  Company Number: FR-AVENTIS-200711154FR

PATIENT
  Age: 38 Year
  Sex: Female

DRUGS (3)
  1. KETEK [Suspect]
     Indication: INFLUENZA
     Route: 048
     Dates: start: 20070319, end: 20070324
  2. DI-ANTALVIC                        /00220901/ [Suspect]
     Indication: INFLUENZA
  3. EFFERALGAN                         /00020001/ [Concomitant]
     Indication: INFLUENZA

REACTIONS (4)
  - CHEST PAIN [None]
  - DYSPNOEA [None]
  - VOMITING [None]
  - WEIGHT DECREASED [None]
